FAERS Safety Report 8912091 (Version 5)
Quarter: 2013Q1

REPORT INFORMATION
  Report Type: Report from Study
  Country: US (occurrence: US)
  Receive Date: 20121115
  Receipt Date: 20130128
  Transmission Date: 20140127
  Serious: Yes (Other)
  Sender: FDA-Public Use
  Company Number: US-BMSGILMSD-2012-0064557

PATIENT
  Age: 48 Year
  Sex: Male

DRUGS (7)
  1. EFAVIRENZ/EMTRICITABINE/TENOFOVIR DISOPROXIL FUMARATE [Suspect]
     Indication: HIV INFECTION
     Dosage: UNK UNK, QD
     Route: 048
     Dates: start: 201109, end: 20121119
  2. RIBAVIRIN [Suspect]
     Indication: HEPATITIS C
     Dosage: 600 MG, BID
     Route: 048
     Dates: start: 20120924
  3. RIBAVIRIN [Suspect]
     Indication: HIV INFECTION
  4. BOCEPREVIR [Suspect]
     Indication: HEPATITIS C
     Dosage: 800 MG, TID
     Route: 048
     Dates: start: 20121019
  5. BOCEPREVIR [Suspect]
     Indication: HIV INFECTION
  6. PEGINTERFERON ALFA-2B [Suspect]
     Indication: HEPATITIS C
     Dosage: 150 ?G, Q1WK
     Route: 058
     Dates: start: 20120924
  7. PEGINTERFERON ALFA-2B [Suspect]
     Indication: HIV INFECTION

REACTIONS (1)
  - Hypophosphataemia [Recovered/Resolved]
